FAERS Safety Report 21299276 (Version 1)
Quarter: 2022Q3

REPORT INFORMATION
  Report Type: Spontaneous
  Country: US (occurrence: None)
  Receive Date: 20220906
  Receipt Date: 20220906
  Transmission Date: 20221027
  Serious: No
  Sender: FDA-Public Use
  Company Number: None

PATIENT

DRUGS (3)
  1. ALBUKED [Suspect]
     Active Substance: ALBUMIN HUMAN
     Route: 042
  2. FLEXBUMIN [Suspect]
     Active Substance: ALBUMIN HUMAN
     Route: 042
  3. ALBUTEIN [Suspect]
     Active Substance: ALBUMIN HUMAN

REACTIONS (3)
  - Product use complaint [None]
  - Product label confusion [None]
  - Circumstance or information capable of leading to medication error [None]
